FAERS Safety Report 7691403-0 (Version None)
Quarter: 2011Q3

REPORT INFORMATION
  Report Type: 
  Country: None (occurrence: None)
  Receive Date: 20110818
  Receipt Date: 20110810
  Transmission Date: 20111222
  Serious: Yes (Hospitalization, Other)
  Sender: FDA-Public Use
  Company Number: PHHY2010JP76526

PATIENT
  Sex: Male
  Weight: 57 kg

DRUGS (3)
  1. AFINITOR [Suspect]
     Indication: METASTATIC RENAL CELL CARCINOMA
     Dosage: 10 MG DAILY
     Route: 048
     Dates: start: 20100811, end: 20100929
  2. REBAMIPIDE [Concomitant]
     Indication: METASTATIC RENAL CELL CARCINOMA
     Dosage: 100 MG, UNK
     Route: 048
     Dates: start: 20100908, end: 20101013
  3. LOXOPROFEN [Concomitant]
     Indication: METASTATIC RENAL CELL CARCINOMA
     Dosage: 60 MG, UNK
     Route: 048
     Dates: start: 20100908, end: 20101013

REACTIONS (8)
  - PLEURAL EFFUSION [None]
  - LUNG DISORDER [None]
  - LIVER DISORDER [None]
  - CARDIAC FAILURE CONGESTIVE [None]
  - BLOOD ALKALINE PHOSPHATASE INCREASED [None]
  - RENAL DISORDER [None]
  - LYMPHOCYTE COUNT DECREASED [None]
  - CARDIOMEGALY [None]
